FAERS Safety Report 16843347 (Version 1)
Quarter: 2019Q3

REPORT INFORMATION
  Report Type: Spontaneous
  Country: AU (occurrence: AU)
  Receive Date: 20190924
  Receipt Date: 20190924
  Transmission Date: 20191005
  Serious: Yes (Other)
  Sender: FDA-Public Use
  Company Number: AU-009507513-1909AUS006898

PATIENT
  Age: 41 Year
  Sex: Female

DRUGS (1)
  1. IMPLANON [Suspect]
     Active Substance: ETONOGESTREL
     Dosage: UNKNOWN
     Route: 059

REACTIONS (5)
  - Weight increased [Recovering/Resolving]
  - Device dislocation [Unknown]
  - Night sweats [Unknown]
  - Pain [Unknown]
  - Suicidal ideation [Unknown]

NARRATIVE: CASE EVENT DATE: 20170602
